FAERS Safety Report 4725880-1 (Version None)
Quarter: 2005Q3

REPORT INFORMATION
  Report Type: 
  Country: None (occurrence: None)
  Receive Date: 20050726
  Receipt Date: 20050726
  Transmission Date: 20060218
  Serious: Yes (Hospitalization)
  Sender: FDA-Public Use
  Company Number: None

PATIENT
  Age: 31 Year
  Sex: Female

DRUGS (7)
  1. REMICADE [Suspect]
     Indication: RHEUMATOID ARTHRITIS
     Dosage: 240MG   INTRAVENOU
     Route: 042
     Dates: start: 20050526, end: 20050609
  2. TYLENOL (CAPLET) [Concomitant]
  3. ALLEGRA [Concomitant]
  4. FOSAMAX [Concomitant]
  5. FOLIC ACID [Concomitant]
  6. ELAVIL [Concomitant]
  7. PREDNISONE [Concomitant]

REACTIONS (4)
  - DYSPNOEA [None]
  - HYPOTENSION [None]
  - INFUSION RELATED REACTION [None]
  - VOMITING [None]
